FAERS Safety Report 9699550 (Version 2)
Quarter: 2014Q2

REPORT INFORMATION
  Report Type: Spontaneous
  Country: US (occurrence: US)
  Receive Date: 20131120
  Receipt Date: 20140429
  Transmission Date: 20141212
  Serious: Yes (Death, Hospitalization, Other)
  Sender: FDA-Public Use
  Company Number: US-BAYER-2013-141626

PATIENT
  Age: 40 Year
  Sex: Male

DRUGS (5)
  1. BETASERON [Suspect]
     Indication: MULTIPLE SCLEROSIS
     Dosage: 0.25 MG, QOD
     Route: 058
     Dates: start: 20130625
  2. ZOSYN [Concomitant]
     Dosage: UNK
     Dates: start: 201310, end: 201310
  3. KEPRA [Concomitant]
     Indication: CONVULSION
     Dosage: 500 MG, QD
     Route: 048
  4. KEPRA [Concomitant]
     Indication: CONVULSION
     Dosage: 500 MG, UNK
     Route: 042
     Dates: start: 201310
  5. VITAMIN B12 [Concomitant]

REACTIONS (10)
  - Duodenal ulcer haemorrhage [Fatal]
  - Pneumonia aspiration [None]
  - Bronchial secretion retention [None]
  - Sepsis [None]
  - Tachycardia [None]
  - Acute respiratory failure [None]
  - Hypotension [None]
  - Cholecystitis chronic [None]
  - Rash maculo-papular [None]
  - Multiple sclerosis relapse [None]
